FAERS Safety Report 25910897 (Version 2)
Quarter: 2025Q4

REPORT INFORMATION
  Report Type: Spontaneous
  Country: AU (occurrence: AU)
  Receive Date: 20251013
  Receipt Date: 20251122
  Transmission Date: 20260118
  Serious: Yes (Hospitalization)
  Sender: CSL BEHRING
  Company Number: AU-BEH-2025221442

PATIENT
  Age: 78 Year
  Sex: Female
  Weight: 52.7 kg

DRUGS (1)
  1. HUMAN IMMUNOGLOBULIN G [Suspect]
     Active Substance: HUMAN IMMUNOGLOBULIN G
     Indication: Chronic lymphocytic leukaemia
     Dosage: 50 ML, QMT
     Route: 042
     Dates: start: 20250930, end: 20250930

REACTIONS (6)
  - Chills [Recovered/Resolved]
  - Tachycardia [Recovered/Resolved]
  - Blood pressure systolic increased [Recovered/Resolved]
  - Back pain [Recovered/Resolved]
  - Chest pain [Recovered/Resolved]
  - Respiratory rate increased [Recovered/Resolved]

NARRATIVE: CASE EVENT DATE: 20250930
